FAERS Safety Report 23567212 (Version 1)
Quarter: 2024Q1

REPORT INFORMATION
  Report Type: Spontaneous
  Country: US (occurrence: US)
  Receive Date: 20240226
  Receipt Date: 20240226
  Transmission Date: 20240409
  Serious: Yes (Other)
  Sender: FDA-Public Use
  Company Number: US-PFIZER INC-PV202400025800

PATIENT
  Age: 54 Year
  Sex: Female

DRUGS (1)
  1. XELJANZ XR [Suspect]
     Active Substance: TOFACITINIB CITRATE
     Indication: Rheumatoid arthritis
     Dosage: 11 MG, DAILY
     Route: 048
     Dates: start: 2018

REACTIONS (6)
  - Skin cancer [Not Recovered/Not Resolved]
  - Thyroidectomy [Unknown]
  - Hip arthroplasty [Unknown]
  - Spinal deformity [Unknown]
  - Hysterectomy [Unknown]
  - Foot fracture [Unknown]

NARRATIVE: CASE EVENT DATE: 20180101
